FAERS Safety Report 11014646 (Version 2)
Quarter: 2015Q2

REPORT INFORMATION
  Report Type: Spontaneous
  Country: US (occurrence: US)
  Receive Date: 20150412
  Receipt Date: 20150525
  Transmission Date: 20150821
  Serious: No
  Sender: FDA-Public Use
  Company Number: US-JNJFOC-20120908418

PATIENT
  Sex: Female

DRUGS (2)
  1. XENAZINE [Concomitant]
     Active Substance: TETRABENAZINE
     Indication: PAIN IN EXTREMITY
     Route: 048
  2. ULTRAM [Suspect]
     Active Substance: TRAMADOL HYDROCHLORIDE
     Indication: PAIN IN EXTREMITY
     Route: 065

REACTIONS (1)
  - Drug ineffective [Not Recovered/Not Resolved]
